FAERS Safety Report 10621928 (Version 1)
Quarter: 2014Q4

REPORT INFORMATION
  Report Type: Spontaneous
  Country: US (occurrence: None)
  Receive Date: 20141201
  Receipt Date: 20141201
  Transmission Date: 20150529
  Serious: Yes (Hospitalization)
  Sender: FDA-Public Use
  Company Number: None

PATIENT
  Age: 63 Year
  Sex: Male
  Weight: 87.6 kg

DRUGS (1)
  1. ERBITUX [Suspect]
     Active Substance: CETUXIMAB

REACTIONS (2)
  - Pyrexia [None]
  - Large intestine perforation [None]

NARRATIVE: CASE EVENT DATE: 20141121
